FAERS Safety Report 9892579 (Version 1)
Quarter: 2014Q1

REPORT INFORMATION
  Report Type: Spontaneous
  Country: PL (occurrence: PL)
  Receive Date: 20140212
  Receipt Date: 20140212
  Transmission Date: 20141002
  Serious: Yes (Hospitalization)
  Sender: FDA-Public Use
  Company Number: PHHY2014PL013955

PATIENT
  Age: 61 Year
  Sex: Female

DRUGS (3)
  1. SIBUTRAMINE [Suspect]
     Indication: OBESITY
     Dosage: 15 MG, UNK
  2. SIBUTRAMINE [Suspect]
     Dosage: 15 MG, UNK
  3. ZOLPIDEM [Suspect]
     Indication: INSOMNIA
     Dosage: 10 MG, UNK

REACTIONS (10)
  - Psychotic disorder [Recovered/Resolved]
  - Hallucination, auditory [Recovered/Resolved]
  - Persecutory delusion [Recovered/Resolved]
  - Abnormal behaviour [Recovered/Resolved]
  - Depressed mood [Recovered/Resolved]
  - Psychomotor hyperactivity [Recovered/Resolved]
  - Amnesia [Recovered/Resolved]
  - Disorientation [Recovered/Resolved]
  - Anxiety [Recovered/Resolved]
  - Insomnia [Recovered/Resolved]
